FAERS Safety Report 14621197 (Version 4)
Quarter: 2018Q4

REPORT INFORMATION
  Report Type: Spontaneous
  Country: US (occurrence: US)
  Receive Date: 20180310
  Receipt Date: 20181213
  Transmission Date: 20190204
  Serious: Yes (Hospitalization, Other)
  Sender: FDA-Public Use
  Company Number: US-009507513-1803USA003838

PATIENT
  Age: 70 Year
  Sex: Female
  Weight: 38.1 kg

DRUGS (7)
  1. CARISOPRODOL. [Concomitant]
     Active Substance: CARISOPRODOL
  2. BELSOMRA [Suspect]
     Active Substance: SUVOREXANT
     Dosage: 5 UNK
     Route: 048
     Dates: start: 20181201
  3. OXYCODONE [Concomitant]
     Active Substance: OXYCODONE
     Indication: PAIN
  4. ASPIRIN. [Concomitant]
     Active Substance: ASPIRIN
     Indication: CARDIAC DISORDER
  5. CANNABIDIOL [Concomitant]
     Active Substance: CANNABIDIOL
     Indication: ANALGESIC THERAPY
  6. BELSOMRA [Suspect]
     Active Substance: SUVOREXANT
     Indication: INSOMNIA
     Dosage: 5 MG, ONCE DAILY
     Route: 048
     Dates: start: 2018, end: 201810
  7. PERCOCET [Concomitant]
     Active Substance: ACETAMINOPHEN\OXYCODONE HYDROCHLORIDE

REACTIONS (10)
  - Myocardial infarction [Unknown]
  - Cardiac disorder [Unknown]
  - Hernia [Unknown]
  - Drug ineffective [Not Recovered/Not Resolved]
  - Poor quality sleep [Not Recovered/Not Resolved]
  - Sleep disorder [Unknown]
  - Arthropathy [Unknown]
  - Somnolence [Unknown]
  - Musculoskeletal pain [Unknown]
  - Product availability issue [Unknown]

NARRATIVE: CASE EVENT DATE: 2018
